FAERS Safety Report 6239127-0 (Version None)
Quarter: 2009Q2

REPORT INFORMATION
  Report Type: 
  Country: None (occurrence: None)
  Receive Date: 20090618
  Receipt Date: 20090618
  Transmission Date: 20091009
  Serious: Yes (Disabling)
  Sender: FDA-Public Use
  Company Number: None

PATIENT
  Sex: Male
  Weight: 70.3075 kg

DRUGS (1)
  1. ZICAM [Suspect]
     Dosage: AS DIRECTED
     Dates: start: 20020101, end: 20030101

REACTIONS (2)
  - AGEUSIA [None]
  - ANOSMIA [None]
